FAERS Safety Report 20480233 (Version 2)
Quarter: 2022Q1

REPORT INFORMATION
  Report Type: Spontaneous
  Country: NZ (occurrence: NZ)
  Receive Date: 20220216
  Receipt Date: 20220308
  Transmission Date: 20220424
  Serious: Yes (Hospitalization)
  Sender: FDA-Public Use
  Company Number: NZ-MYLANLABS-2021M1066164

PATIENT
  Age: 79 Year
  Sex: Female

DRUGS (2)
  1. CLOZARIL [Suspect]
     Active Substance: CLOZAPINE
     Indication: Schizophrenia
     Dosage: 50 MILLIGRAM
     Route: 048
     Dates: start: 20210818
  2. CLOZARIL [Suspect]
     Active Substance: CLOZAPINE
     Dosage: 50 MILLIGRAM, PM
     Dates: start: 202008

REACTIONS (9)
  - Syncope [Recovered/Resolved]
  - Dehydration [Recovered/Resolved]
  - Product dispensing issue [Unknown]
  - Mean cell volume increased [Not Recovered/Not Resolved]
  - Red blood cell count decreased [Not Recovered/Not Resolved]
  - Mean cell haemoglobin concentration decreased [Unknown]
  - Cognitive disorder [Unknown]
  - Mean cell haemoglobin increased [Not Recovered/Not Resolved]
  - Orthostatic hypotension [Recovered/Resolved]

NARRATIVE: CASE EVENT DATE: 20210922
